FAERS Safety Report 8884011 (Version 5)
Quarter: 2013Q3

REPORT INFORMATION
  Report Type: Spontaneous
  Country: US (occurrence: US)
  Receive Date: 20121102
  Receipt Date: 20130705
  Transmission Date: 20140515
  Serious: Yes (Hospitalization, Disabling, Other)
  Sender: FDA-Public Use
  Company Number: US-MERCK-1210USA010339

PATIENT
  Sex: Female
  Weight: 74.83 kg

DRUGS (7)
  1. FOSAMAX [Suspect]
     Indication: OSTEOPOROSIS
     Dosage: 70 MG, UNK
     Route: 048
     Dates: start: 200002, end: 201110
  2. FOSAMAX [Suspect]
     Indication: OSTEOPOROSIS
     Dosage: UNK
     Route: 048
     Dates: start: 2002, end: 201112
  3. FOSAMAX [Suspect]
     Indication: OSTEOPENIA
  4. CALIUM (CALCIUM CARBONATE) [Concomitant]
     Dosage: 600 UNK, +D
     Dates: start: 2000
  5. HORMONES (UNSPECIFIED) [Concomitant]
  6. GLUCOPHAGE [Concomitant]
  7. COZAAR [Concomitant]

REACTIONS (25)
  - Femur fracture [Not Recovered/Not Resolved]
  - Femur fracture [Not Recovered/Not Resolved]
  - Open reduction of fracture [Unknown]
  - Femur fracture [Not Recovered/Not Resolved]
  - Renal failure [Unknown]
  - Chronic obstructive pulmonary disease [Recovering/Resolving]
  - Bronchitis [Recovering/Resolving]
  - Hypoxia [Recovering/Resolving]
  - Procedural hypotension [Recovering/Resolving]
  - Rotator cuff repair [Unknown]
  - Osteoporosis [Not Recovered/Not Resolved]
  - Stress fracture [Not Recovered/Not Resolved]
  - Low turnover osteopathy [Not Recovered/Not Resolved]
  - Accident at work [Recovered/Resolved]
  - Upper limb fracture [Recovered/Resolved]
  - Musculoskeletal pain [Unknown]
  - Hyperlipidaemia [Unknown]
  - Hysterectomy [Unknown]
  - Foot operation [Unknown]
  - Knee operation [Unknown]
  - Muscle strain [Unknown]
  - Rotator cuff syndrome [Unknown]
  - Depression [Unknown]
  - Anaemia [Unknown]
  - Asymptomatic bacteriuria [Unknown]
